FAERS Safety Report 4776351-8 (Version None)
Quarter: 2005Q3

REPORT INFORMATION
  Report Type: 
  Country: None (occurrence: None)
  Receive Date: 20050921
  Receipt Date: 20050908
  Transmission Date: 20060218
  Serious: Yes (Life-Threatening)
  Sender: FDA-Public Use
  Company Number: 2005019549

PATIENT
  Age: 66 Year
  Sex: Male
  Weight: 82 kg

DRUGS (6)
  1. DOXORUBICIN HYDROCHLORIDE [Suspect]
     Indication: LYMPHOMA
     Dosage: 50 MG/M2, INTRAVENOUS
     Route: 042
     Dates: start: 20030524, end: 20031022
  2. PREDNISONE TAB [Suspect]
     Indication: DERMATOMYOSITIS
     Dosage: 80 MG , ORAL
     Route: 048
  3. VINCRISTINE SULFATE [Suspect]
     Indication: LYMPHOMA
     Dosage: 2 MG, INTRAVENOUS
     Route: 042
     Dates: start: 20030524, end: 20030911
  4. CYCLOPHOSPHAMIDE [Suspect]
     Indication: LYMPHOMA
     Dosage: 750 MG/M2, INTRAVENOUS
     Route: 042
     Dates: start: 20030524, end: 20031022
  5. ETOPOSIDE [Suspect]
     Indication: LYMPHOMA
     Dosage: 300 MG, INTRAVENOUS
     Route: 036
     Dates: start: 20031001, end: 20031022
  6. RITUXIMAB (RITUXIMAB) [Suspect]
     Indication: LYMPHOMA
     Dosage: 375 MG/M2
     Dates: start: 20030524, end: 20031022

REACTIONS (6)
  - HAEMATURIA [None]
  - METASTASES TO BONE [None]
  - NEUROPATHY PERIPHERAL [None]
  - PARAESTHESIA [None]
  - POLLAKIURIA [None]
  - PROSTATE CANCER METASTATIC [None]
